FAERS Safety Report 8818498 (Version 1)
Quarter: 2012Q4

REPORT INFORMATION
  Report Type: 
  Country: TW (occurrence: TW)
  Receive Date: 20121001
  Receipt Date: 20121001
  Transmission Date: 20130627
  Serious: Yes (Hospitalization, Other)
  Sender: FDA-Public Use
  Company Number: TW-ROCHE-1132385

PATIENT
  Age: 81 Year
  Sex: Male

DRUGS (5)
  1. AVASTIN [Suspect]
     Indication: COLORECTAL CANCER METASTATIC
     Route: 065
     Dates: start: 201104
  2. OXALIPLATIN [Suspect]
     Indication: COLORECTAL CANCER METASTATIC
     Route: 065
     Dates: start: 201104, end: 20110718
  3. 5-FLUOROURACIL [Suspect]
     Indication: COLORECTAL CANCER METASTATIC
     Route: 065
     Dates: start: 201104
  4. LEUCOVORIN [Suspect]
     Indication: COLORECTAL CANCER METASTATIC
     Route: 065
     Dates: start: 201104
  5. CAMPTO [Suspect]
     Indication: COLORECTAL CANCER METASTATIC
     Route: 065
     Dates: start: 20110729

REACTIONS (10)
  - Febrile neutropenia [Recovered/Resolved]
  - Ileal perforation [Recovered/Resolved]
  - Pelvic abscess [Recovered/Resolved]
  - Necrotising fasciitis [Recovered/Resolved]
  - Urethral fistula [Recovered/Resolved]
  - Urogenital fistula [Recovered/Resolved]
  - Urosepsis [Recovered/Resolved]
  - Intestinal dilatation [Recovered/Resolved]
  - Electrolyte imbalance [Recovered/Resolved]
  - Abdominal discomfort [Recovered/Resolved]
